FAERS Safety Report 16634095 (Version 2)
Quarter: 2019Q3

REPORT INFORMATION
  Report Type: Spontaneous
  Country: FR (occurrence: FR)
  Receive Date: 20190725
  Receipt Date: 20190808
  Transmission Date: 20191004
  Serious: Yes (Other)
  Sender: FDA-Public Use
  Company Number: FR-CELLTRION INC.-2019FR023050

PATIENT

DRUGS (1)
  1. TRASTUZUMAB (UNKNOWN) [Suspect]
     Active Substance: TRASTUZUMAB
     Indication: BREAST CANCER
     Dosage: UNK, AT LEAST TWO INJECTIONS OF TRASTUZUMAB (INTRAVENOUSLY OR SUBCUTANEOUSLY)
     Route: 065
     Dates: start: 20180101, end: 20180701

REACTIONS (1)
  - Ejection fraction decreased [Unknown]
